FAERS Safety Report 10083589 (Version 1)
Quarter: 2014Q2

REPORT INFORMATION
  Report Type: Spontaneous
  Country: DE (occurrence: None)
  Receive Date: 20140415
  Receipt Date: 20140415
  Transmission Date: 20141212
  Serious: Yes (Hospitalization, Other)
  Sender: FDA-Public Use
  Company Number: 2014-19337

PATIENT
  Age: 80 Year
  Sex: Female

DRUGS (8)
  1. EYLEA [Suspect]
     Indication: AGE-RELATED MACULAR DEGENERATION
     Route: 031
     Dates: start: 20140312
  2. ALENDRONIC ACID (ALENDRONIC ACID) [Concomitant]
  3. ASPIRIN (ACETYLSALICYLIC ACID) [Concomitant]
  4. ATENOLOL (ATENOLOL) [Concomitant]
  5. CALCICHEW D3 (CALCIUM CARBONATE, COLECALCIFEROL) [Concomitant]
  6. FELODIPINE (FELODIPINE) [Concomitant]
  7. INDAPAMIDE (INDAPAMIDE) [Concomitant]
  8. PARACETAMOL (PARACETAMOL) [Concomitant]

REACTIONS (4)
  - Visual acuity reduced [None]
  - Ocular hyperaemia [None]
  - Eye pain [None]
  - Vitreous floaters [None]
